FAERS Safety Report 6825094-5 (Version None)
Quarter: 2010Q3

REPORT INFORMATION
  Report Type: 
  Country: None (occurrence: None)
  Receive Date: 20100708
  Receipt Date: 20061120
  Transmission Date: 20110219
  Serious: No
  Sender: FDA-Public Use
  Company Number: US-PFIZER INC-2006147427

PATIENT
  Sex: Female
  Weight: 72.6 kg

DRUGS (9)
  1. CHANTIX [Suspect]
     Indication: SMOKING CESSATION THERAPY
     Dates: start: 20061115
  2. PAXIL CR [Concomitant]
  3. KLONOPIN [Concomitant]
     Indication: ANXIETY
  4. DIOVAN HCT [Concomitant]
     Indication: HYPERTENSION
  5. ALBUTEROL [Concomitant]
  6. PROTONIX [Concomitant]
     Indication: GASTRIC DISORDER
  7. ALLEGRA [Concomitant]
     Indication: HYPERSENSITIVITY
  8. RHINOCORT [Concomitant]
  9. ASPIRIN [Concomitant]

REACTIONS (1)
  - HEADACHE [None]
